FAERS Safety Report 8206007-0 (Version None)
Quarter: 2012Q1

REPORT INFORMATION
  Report Type: 
  Country: None (occurrence: None)
  Receive Date: 20120313
  Receipt Date: 20120305
  Transmission Date: 20120608
  Serious: Yes (Hospitalization, Other)
  Sender: FDA-Public Use
  Company Number: DE-B.I. PHARMACEUTICALS,INC./RIDGEFIELD-2012-DE-00633DE

PATIENT
  Age: 87 Year
  Sex: Female
  Weight: 50 kg

DRUGS (15)
  1. GLIMEPIRID [Concomitant]
     Dosage: 3 MG
     Route: 048
  2. LEVOTHYROXINE SODIUM [Concomitant]
     Dosage: 100 MG
     Route: 048
  3. TORSEMIDE [Concomitant]
     Dosage: 10 MG
     Route: 048
  4. ALLOPURINOL [Concomitant]
     Dosage: 300 MG
     Route: 048
  5. LACTULOSE [Concomitant]
  6. ENALAPRIL [Concomitant]
     Dosage: 20 MG
     Route: 048
  7. AMLODIPINE [Concomitant]
     Dosage: 5 MG
     Route: 048
  8. LOPEDIUM [Concomitant]
  9. ERYFER [Concomitant]
     Dosage: 100 MG
     Route: 048
  10. DIPYRONE TAB [Concomitant]
     Dosage: 500 MG
     Route: 048
  11. BISOPROLOL FUMARATE [Concomitant]
     Dosage: 10 MG
     Route: 048
  12. PANTOPRAZOLE [Concomitant]
     Dosage: 20 MG
     Route: 048
  13. PRADAXA [Suspect]
     Indication: ATRIAL FIBRILLATION
     Dosage: 220 MG
     Route: 048
  14. DIGOXIN [Concomitant]
     Dosage: 0.2 MG
     Route: 048
  15. PRAVASTATIN [Concomitant]
     Dosage: 40 MG
     Route: 048

REACTIONS (1)
  - ACUTE HEPATIC FAILURE [None]
